FAERS Safety Report 7368703-7 (Version None)
Quarter: 2011Q1

REPORT INFORMATION
  Report Type: 
  Country: None (occurrence: None)
  Receive Date: 20110323
  Receipt Date: 20100909
  Transmission Date: 20110831
  Serious: Yes (Other)
  Sender: FDA-Public Use
  Company Number: US-BAYER-201012511NA

PATIENT
  Sex: Female
  Weight: 129 kg

DRUGS (6)
  1. DEPAKOTE [Concomitant]
     Route: 048
  2. IBUPROFEN [Concomitant]
  3. TRANXENE [Concomitant]
     Route: 048
  4. ALLEGRA [Concomitant]
     Route: 048
  5. OCELLA [Suspect]
     Indication: MIGRAINE
     Dosage: UNK
     Dates: start: 20080914, end: 20091207
  6. YASMIN [Suspect]
     Indication: MIGRAINE
     Dosage: UNK
     Dates: start: 20040821, end: 20080815

REACTIONS (4)
  - CHOLECYSTITIS CHRONIC [None]
  - ABDOMINAL PAIN [None]
  - CHOLECYSTECTOMY [None]
  - GALLBLADDER DISORDER [None]
